FAERS Safety Report 6767921-6 (Version None)
Quarter: 2010Q2

REPORT INFORMATION
  Report Type: 
  Country: None (occurrence: None)
  Receive Date: 20100610
  Receipt Date: 20100531
  Transmission Date: 20101027
  Serious: Yes (Other)
  Sender: FDA-Public Use
  Company Number: 231799J10USA

PATIENT
  Age: 51 Year
  Sex: Female

DRUGS (8)
  1. REBIF [Suspect]
     Indication: MULTIPLE SCLEROSIS
     Dosage: 44 MCG, 3 IN 1 WK, SUBCUTANEOUS
     Route: 058
     Dates: start: 20090309
  2. TYLENOL (COTYLENOL) [Concomitant]
  3. BONIVA [Concomitant]
  4. NEXIUM [Concomitant]
  5. NORVASC [Concomitant]
  6. RANITIDINE [Concomitant]
  7. BACLOFEN [Concomitant]
  8. PROVIGIL [Concomitant]

REACTIONS (10)
  - BLOOD PRESSURE INCREASED [None]
  - CERVICAL SPINAL STENOSIS [None]
  - CONDITION AGGRAVATED [None]
  - INJECTION SITE ERYTHEMA [None]
  - INJECTION SITE PAIN [None]
  - INJECTION SITE PRURITUS [None]
  - INTERVERTEBRAL DISC DEGENERATION [None]
  - MUSCLE SPASMS [None]
  - POST PROCEDURAL COMPLICATION [None]
  - VISUAL IMPAIRMENT [None]
